FAERS Safety Report 6154969-8 (Version None)
Quarter: 2009Q2

REPORT INFORMATION
  Report Type: 
  Country: None (occurrence: None)
  Receive Date: 20090410
  Receipt Date: 20090330
  Transmission Date: 20091009
  Serious: Yes (Hospitalization)
  Sender: FDA-Public Use
  Company Number: GXKR2009JP03093

PATIENT
  Age: 70 Year
  Sex: Male
  Weight: 64.2 kg

DRUGS (9)
  1. CARBOPLATIN SANDOX (NGX) (CARBOPLATIN) UNKNOWN [Suspect]
     Indication: LUNG NEOPLASM MALIGNANT
     Dosage: 500 MG, QD, INFUSION
     Dates: start: 20081014
  2. PACLITAXEL [Suspect]
     Indication: LUNG NEOPLASM MALIGNANT
     Dosage: 90 MG, QD, INFUSION
     Dates: start: 20081014
  3. SEROTONE (AZASETRON HYDROCHLORIDE) INJECTION [Concomitant]
  4. DEXAMETHASONE SODIUM PHOSPHATE (DEXAMETHASONE SODIUM PHOSPHATE) INJECT [Concomitant]
  5. ZANTAC (RANITIDINE HYDROCHLORIDE) INJECTION [Concomitant]
  6. POLARAMINE (DEXCHLORPHENIRAMINE MALEATE) INJECTION [Concomitant]
  7. OMEPRAL (OMEPRAZOLE) TABLET [Concomitant]
  8. HOKUNALIN (TULOBUTEROL HYDROCHLORIDE) TAPE (INCLUDING POULTICE) [Concomitant]
  9. ANTIBIOTICS (NO INGREDIENTS/SUBSTANCES) [Concomitant]

REACTIONS (6)
  - ACUTE RESPIRATORY DISTRESS SYNDROME [None]
  - BACTERIA SPUTUM IDENTIFIED [None]
  - DISEASE PROGRESSION [None]
  - INTERSTITIAL LUNG DISEASE [None]
  - LUNG NEOPLASM MALIGNANT [None]
  - RASH [None]
